FAERS Safety Report 9952640 (Version 1)
Quarter: 2014Q1

REPORT INFORMATION
  Report Type: Report from Study
  Country: DE (occurrence: DE)
  Receive Date: 20140304
  Receipt Date: 20140304
  Transmission Date: 20141002
  Serious: Yes (Hospitalization)
  Sender: FDA-Public Use
  Company Number: DE-ELI_LILLY_AND_COMPANY-DE201402006959

PATIENT
  Age: 47 Year
  Sex: Male
  Weight: 96 kg

DRUGS (2)
  1. OLANZAPINE LONG-ACTING IM [Suspect]
     Indication: SCHIZOPHRENIA
     Dosage: 300 MG, EVERY SECOND WEEK
     Route: 030
     Dates: start: 20130416
  2. PREGABALIN [Concomitant]
     Dosage: 300 MG, TWICE DAILY
     Route: 048
     Dates: start: 20130711

REACTIONS (4)
  - Disturbance in attention [Recovered/Resolved]
  - Disorientation [Recovered/Resolved]
  - Somnolence [Recovered/Resolved]
  - Sedation [Recovered/Resolved]
